FAERS Safety Report 6421543-5 (Version None)
Quarter: 2009Q4

REPORT INFORMATION
  Report Type: 
  Country: None (occurrence: None)
  Receive Date: 20091030
  Receipt Date: 20091019
  Transmission Date: 20100525
  Serious: Yes (Other)
  Sender: FDA-Public Use
  Company Number: US-PFIZER INC-2009287201

PATIENT
  Sex: Female

DRUGS (4)
  1. XANAX [Suspect]
     Indication: ANXIETY
     Dosage: UNK
     Route: 048
  2. DURAGESIC-100 [Concomitant]
     Dosage: UNK
  3. PERCOCET [Concomitant]
     Dosage: UNK
  4. PREVACID [Concomitant]

REACTIONS (6)
  - CHRONIC LYMPHOCYTIC LEUKAEMIA [None]
  - DRUG INEFFECTIVE [None]
  - EMPHYSEMA [None]
  - FALL [None]
  - FIBROMYALGIA [None]
  - NERVE INJURY [None]
